FAERS Safety Report 5478493-0 (Version None)
Quarter: 2007Q4

REPORT INFORMATION
  Report Type: 
  Country: None (occurrence: None)
  Receive Date: 20071005
  Receipt Date: 20070926
  Transmission Date: 20080405
  Serious: Yes (Other)
  Sender: FDA-Public Use
  Company Number: JP-ASTRAZENECA-2007AP06226

PATIENT
  Age: 2 Year
  Sex: Male
  Weight: 13 kg

DRUGS (5)
  1. ANAPEINE INJECTION [Suspect]
     Indication: INFILTRATION ANAESTHESIA
     Dosage: 3 ML GIVEN IN THE RIGHT SIDE OF THE FACE, 1.8 ML GIVEN IN LEFT SIDE OF THE FACE
  2. SEVOFLURANE [Concomitant]
     Indication: INDUCTION OF ANAESTHESIA
     Route: 055
  3. SEVOFLURANE [Concomitant]
     Indication: MAINTENANCE OF ANAESTHESIA
     Route: 055
  4. MIDAZOLAM HCL [Concomitant]
     Indication: MAINTENANCE OF ANAESTHESIA
     Dosage: DOSE UNKNOWN
  5. FLUMAZENIL [Concomitant]
     Indication: SOMNOLENCE

REACTIONS (2)
  - FACIAL PALSY [None]
  - PNEUMONIA [None]
